FAERS Safety Report 7341226-7 (Version None)
Quarter: 2011Q1

REPORT INFORMATION
  Report Type: 
  Country: None (occurrence: None)
  Receive Date: 20110309
  Receipt Date: 20110228
  Transmission Date: 20110831
  Serious: Yes (Hospitalization)
  Sender: FDA-Public Use
  Company Number: JP-BRISTOL-MYERS SQUIBB COMPANY-15592066

PATIENT
  Age: 8 Decade
  Sex: Male

DRUGS (2)
  1. WARFARIN SODIUM [Suspect]
  2. CIPRALAN [Suspect]
     Route: 065

REACTIONS (5)
  - DEMENTIA [None]
  - ANAEMIA [None]
  - VENTRICULAR TACHYCARDIA [None]
  - DUODENAL ULCER HAEMORRHAGE [None]
  - RENAL IMPAIRMENT [None]
